FAERS Safety Report 8135212-7 (Version None)
Quarter: 2012Q1

REPORT INFORMATION
  Report Type: 
  Country: None (occurrence: None)
  Receive Date: 20120214
  Receipt Date: 20120208
  Transmission Date: 20120608
  Serious: Yes (Death)
  Sender: FDA-Public Use
  Company Number: TW-CUBIST-2012S1000144

PATIENT
  Age: 66 Year
  Sex: Male

DRUGS (4)
  1. CUBICIN [Suspect]
     Indication: TREATMENT FAILURE
     Route: 042
  2. TEICOPLANIN [Concomitant]
     Indication: PRODUCT USED FOR UNKNOWN INDICATION
     Dosage: DOSE UNIT:U UNKNOWN
     Route: 065
  3. CUBICIN [Suspect]
     Indication: STAPHYLOCOCCAL INFECTION
     Route: 042
  4. VANCOMYCIN [Concomitant]
     Indication: PRODUCT USED FOR UNKNOWN INDICATION
     Dosage: DOSE UNIT:U UNKNOWN
     Route: 065

REACTIONS (4)
  - TREATMENT FAILURE [None]
  - MULTI-ORGAN FAILURE [None]
  - SYSTEMIC CANDIDA [None]
  - SEPTIC SHOCK [None]
